FAERS Safety Report 10443472 (Version 2)
Quarter: 2014Q4

REPORT INFORMATION
  Report Type: Spontaneous
  Country: US (occurrence: US)
  Receive Date: 20140910
  Receipt Date: 20141023
  Transmission Date: 20150528
  Serious: No
  Sender: FDA-Public Use
  Company Number: US-BIOGENIDEC-2014BI091274

PATIENT
  Sex: Female

DRUGS (1)
  1. TYSABRI [Suspect]
     Active Substance: NATALIZUMAB
     Indication: MULTIPLE SCLEROSIS
     Route: 042
     Dates: start: 20131113

REACTIONS (4)
  - Viral infection [Not Recovered/Not Resolved]
  - Alopecia [Not Recovered/Not Resolved]
  - Somnolence [Not Recovered/Not Resolved]
  - Fatigue [Not Recovered/Not Resolved]
